FAERS Safety Report 8181124-2 (Version None)
Quarter: 2012Q1

REPORT INFORMATION
  Report Type: 
  Country: None (occurrence: None)
  Receive Date: 20120302
  Receipt Date: 20120224
  Transmission Date: 20120608
  Serious: Yes (Hospitalization)
  Sender: FDA-Public Use
  Company Number: JP-UCBSA-052364

PATIENT
  Age: 11 Year
  Sex: Male

DRUGS (6)
  1. KEPPRA [Suspect]
     Dosage: DAILY DOSE 650 MG
     Route: 048
     Dates: start: 20111110, end: 20111113
  2. KEPPRA [Suspect]
     Indication: INFANTILE SPASMS
     Dosage: DAILY DOSE 1300 MG
     Route: 048
     Dates: start: 20111103, end: 20111109
  3. VALPROATE SODIUM [Concomitant]
     Indication: INFANTILE SPASMS
     Route: 048
  4. CARBAMAZEPINE [Concomitant]
     Indication: INFANTILE SPASMS
     Dosage: UNKNOWN DOSE
     Route: 048
  5. CLONAZEPAM [Concomitant]
     Indication: INFANTILE SPASMS
     Dosage: DAILY DOSE 1.5 MG
     Route: 048
  6. KEPPRA [Suspect]
     Dosage: DAILY DOSE 250 MG
     Route: 048
     Dates: start: 20111114, end: 20111117

REACTIONS (4)
  - DECREASED APPETITE [None]
  - SOMNOLENCE [None]
  - STATUS EPILEPTICUS [None]
  - DECREASED ACTIVITY [None]
